FAERS Safety Report 24852894 (Version 3)
Quarter: 2025Q1

REPORT INFORMATION
  Report Type: Spontaneous
  Country: JP (occurrence: JP)
  Receive Date: 20250116
  Receipt Date: 20250211
  Transmission Date: 20250409
  Serious: Yes (Hospitalization, Other)
  Sender: JOHNSON AND JOHNSON
  Company Number: JP-NShinyaku-EVA20250045001001307081

PATIENT
  Age: 72 Year
  Sex: Female
  Weight: 43 kg

DRUGS (12)
  1. UPTRAVI [Suspect]
     Active Substance: SELEXIPAG
     Indication: Pulmonary arterial hypertension
     Dosage: AFTER BREAKFAST AND DINNER
     Route: 048
  2. UPTRAVI [Suspect]
     Active Substance: SELEXIPAG
     Indication: Pulmonary arterial hypertension
     Route: 048
  3. OPSUMIT [Suspect]
     Active Substance: MACITENTAN
     Indication: Pulmonary arterial hypertension
     Dosage: AFTER BREAKFAST
     Route: 048
  4. ADCIRCA [Suspect]
     Active Substance: TADALAFIL
     Dosage: AFTER BREAKFAST
     Route: 048
  5. NIFEDIPINE [Concomitant]
     Active Substance: NIFEDIPINE
     Dosage: AFTER BREAKFAST
  6. ENALAPRIL MALEATE [Concomitant]
     Active Substance: ENALAPRIL MALEATE
     Dosage: AFTER BREAKFAST
  7. PREDNISOLONE [Concomitant]
     Active Substance: PREDNISOLONE
     Dosage: AFTER BREAKFAST
  8. PREDNISOLONE [Concomitant]
     Active Substance: PREDNISOLONE
  9. SODIUM FERROUS CITRATE [Concomitant]
     Active Substance: SODIUM FERROUS CITRATE
     Dosage: AFTER BREAKFAST
  10. DAPRODUSTAT [Concomitant]
     Active Substance: DAPRODUSTAT
     Dosage: AFTER BREAKFAST
  11. MYCOPHENOLATE MOFETIL [Concomitant]
     Active Substance: MYCOPHENOLATE MOFETIL
     Dosage: AFTER BREAKFAST AND DINNER
  12. TADALAFIL [Concomitant]
     Active Substance: TADALAFIL
     Indication: Pulmonary arterial hypertension
     Dosage: AFTER BREAKFAST

REACTIONS (11)
  - Generalised oedema [Unknown]
  - Right ventricular failure [Unknown]
  - Ascites [Not Recovered/Not Resolved]
  - Oedema [Recovered/Resolved]
  - Pleural effusion [Unknown]
  - Pericardial effusion [Unknown]
  - Sclerema [Unknown]
  - Interstitial lung disease [Unknown]
  - Pulmonary hypertension [Unknown]
  - Respiratory disorder [Unknown]
  - Aortic valve stenosis [Unknown]
